FAERS Safety Report 6139309-2 (Version None)
Quarter: 2009Q2

REPORT INFORMATION
  Report Type: 
  Country: None (occurrence: None)
  Receive Date: 20090401
  Receipt Date: 20090326
  Transmission Date: 20091009
  Serious: Yes (Other)
  Sender: FDA-Public Use
  Company Number: US-AMGEN-KDL339019

PATIENT
  Sex: Female
  Weight: 77.2 kg

DRUGS (1)
  1. PROCRIT [Suspect]
     Indication: ANAEMIA
     Route: 058
     Dates: start: 20040101

REACTIONS (1)
  - THERAPEUTIC RESPONSE DECREASED [None]
